FAERS Safety Report 18297490 (Version 1)
Quarter: 2020Q3

REPORT INFORMATION
  Report Type: Spontaneous
  Country: IR (occurrence: IR)
  Receive Date: 20200922
  Receipt Date: 20200922
  Transmission Date: 20201103
  Serious: Yes (Death)
  Sender: FDA-Public Use
  Company Number: IR-PFIZER INC-2020358975

PATIENT
  Age: 6 Year
  Sex: Male

DRUGS (16)
  1. METHYLPREDNISOLONE ACETATE. [Suspect]
     Active Substance: METHYLPREDNISOLONE ACETATE
     Indication: HENOCH-SCHONLEIN PURPURA
     Dosage: UNK
     Dates: start: 202004
  2. METHYLPREDNISOLONE ACETATE. [Suspect]
     Active Substance: METHYLPREDNISOLONE ACETATE
     Indication: DIFFUSE ALVEOLAR DAMAGE
  3. HYDROXYCHLOROQUINE [Suspect]
     Active Substance: HYDROXYCHLOROQUINE
     Indication: PULMONARY ALVEOLAR HAEMORRHAGE
     Dosage: UNK
     Dates: start: 202004
  4. CYCLOPHOSPHAMIDE. [Suspect]
     Active Substance: CYCLOPHOSPHAMIDE
     Indication: HENOCH-SCHONLEIN PURPURA
  5. IBUPROFEN. [Concomitant]
     Active Substance: IBUPROFEN
     Indication: HENOCH-SCHONLEIN PURPURA
     Dosage: UNK
     Dates: start: 202004
  6. AZITHROMYCIN ANHYDROUS. [Suspect]
     Active Substance: AZITHROMYCIN ANHYDROUS
     Indication: HENOCH-SCHONLEIN PURPURA
     Dosage: UNK
     Dates: start: 202004
  7. HYDROXYCHLOROQUINE [Suspect]
     Active Substance: HYDROXYCHLOROQUINE
     Indication: HENOCH-SCHONLEIN PURPURA
  8. AZITHROMYCIN ANHYDROUS. [Suspect]
     Active Substance: AZITHROMYCIN ANHYDROUS
     Indication: COVID-19
  9. METHYLPREDNISOLONE ACETATE. [Suspect]
     Active Substance: METHYLPREDNISOLONE ACETATE
     Indication: COVID-19
  10. AZITHROMYCIN ANHYDROUS. [Suspect]
     Active Substance: AZITHROMYCIN ANHYDROUS
     Indication: DIFFUSE ALVEOLAR DAMAGE
  11. CLOXACILLIN [Suspect]
     Active Substance: CLOXACILLIN
     Indication: HENOCH-SCHONLEIN PURPURA
  12. CYCLOPHOSPHAMIDE. [Suspect]
     Active Substance: CYCLOPHOSPHAMIDE
     Indication: PULMONARY ALVEOLAR HAEMORRHAGE
     Dosage: UNK
     Dates: start: 202004
  13. CYCLOPHOSPHAMIDE. [Suspect]
     Active Substance: CYCLOPHOSPHAMIDE
     Indication: COVID-19
  14. CLOXACILLIN [Suspect]
     Active Substance: CLOXACILLIN
     Indication: PULMONARY ALVEOLAR HAEMORRHAGE
     Dosage: UNK
     Dates: start: 202004
  15. HYDROXYCHLOROQUINE [Suspect]
     Active Substance: HYDROXYCHLOROQUINE
     Indication: COVID-19
  16. CLOXACILLIN [Suspect]
     Active Substance: CLOXACILLIN
     Indication: COVID-19

REACTIONS (3)
  - Respiratory failure [Fatal]
  - Off label use [Fatal]
  - Drug ineffective for unapproved indication [Fatal]

NARRATIVE: CASE EVENT DATE: 202004
